FAERS Safety Report 6502138-1 (Version None)
Quarter: 2009Q4

REPORT INFORMATION
  Report Type: 
  Country: None (occurrence: None)
  Receive Date: 20091216
  Receipt Date: 20091005
  Transmission Date: 20100525
  Serious: No
  Sender: FDA-Public Use
  Company Number: US-ABBOTT-09P-163-0601794-00

PATIENT
  Age: 53 Year
  Sex: Female
  Weight: 78.088 kg

DRUGS (8)
  1. TRILIPIX [Suspect]
     Indication: BLOOD TRIGLYCERIDES INCREASED
     Route: 048
     Dates: start: 20090801, end: 20091002
  2. ZETIA [Concomitant]
     Indication: BLOOD CHOLESTEROL INCREASED
     Route: 048
  3. LYRICA [Concomitant]
     Indication: PAIN
     Route: 048
  4. WELLBUTRIN XL [Concomitant]
     Indication: DEPRESSION
     Route: 048
  5. MAXZIDE [Concomitant]
     Indication: HYPERTENSION
     Dosage: 75/50MG 1/2 TAB ONCE A DAY
     Route: 048
  6. KLOR-CON [Concomitant]
     Indication: MINERAL SUPPLEMENTATION
     Route: 048
  7. VITAMINS [Concomitant]
     Indication: VITAMIN SUPPLEMENTATION
  8. NATURAL ESTROGEN [Concomitant]
     Indication: MENOPAUSE

REACTIONS (3)
  - MYALGIA [None]
  - SENSATION OF HEAVINESS [None]
  - VAGINAL HAEMORRHAGE [None]
